FAERS Safety Report 5214714-7 (Version None)
Quarter: 2006Q4

REPORT INFORMATION
  Report Type: 
  Country: None (occurrence: None)
  Receive Date: 20061113
  Receipt Date: 20060913
  Transmission Date: 20070319
  Serious: Yes (Disabling)
  Sender: FDA-Public Use
  Company Number: US-JNJFOC-20060903707

PATIENT
  Age: 75 Year
  Sex: Female
  Weight: 62.5964 kg

DRUGS (4)
  1. LEVAQUIN [Suspect]
     Indication: DIVERTICULITIS
     Dosage: 500 MG, 1 IN 1 DAY, INTRAVENOUS
     Route: 042
     Dates: start: 20060501, end: 20060504
  2. LEVAQUIN [Suspect]
     Indication: DIVERTICULITIS
     Dosage: 500 MG, 1 IN 1 DAY, ORAL
     Route: 048
     Dates: start: 20060505, end: 20060704
  3. ZESTRIL [Concomitant]
  4. PLAVIX [Concomitant]

REACTIONS (1)
  - TENDONITIS [None]
